FAERS Safety Report 8990269 (Version 3)
Quarter: 2013Q1

REPORT INFORMATION
  Report Type: Spontaneous
  Country: JP (occurrence: JP)
  Receive Date: 20121228
  Receipt Date: 20130311
  Transmission Date: 20140127
  Serious: Yes (Hospitalization)
  Sender: FDA-Public Use
  Company Number: JP-ASTRAZENECA-2012SE95963

PATIENT
  Age: 66 Year
  Sex: Male

DRUGS (4)
  1. MEROPEN [Suspect]
     Indication: CHOLECYSTITIS
     Route: 042
     Dates: start: 20121012, end: 20121016
  2. PL [Suspect]
     Indication: NASOPHARYNGITIS
     Route: 048
     Dates: start: 20121010, end: 20121011
  3. MEIACT [Suspect]
     Indication: NASOPHARYNGITIS
     Route: 048
     Dates: start: 20121010, end: 20121011
  4. PARIET [Concomitant]
     Route: 048
     Dates: start: 20121012, end: 20121016

REACTIONS (1)
  - Renal failure acute [Recovered/Resolved]
